FAERS Safety Report 7664854 (Version 5)
Quarter: 2013Q4

REPORT INFORMATION
  Report Type: Spontaneous
  Country: US (occurrence: US)
  Receive Date: 20101111
  Receipt Date: 20131113
  Transmission Date: 20140711
  Serious: Yes (Other)
  Sender: FDA-Public Use
  Company Number: US-ROCHE-718989

PATIENT
  Age: 17 Year
  Sex: Male
  Weight: 61.2 kg

DRUGS (12)
  1. ACCUTANE [Suspect]
     Indication: ACNE
     Route: 048
  2. ACCUTANE [Suspect]
     Route: 048
  3. ACCUTANE [Suspect]
     Route: 048
     Dates: start: 19930623, end: 19930913
  4. ACCUTANE [Suspect]
     Route: 048
     Dates: start: 19990731, end: 19990819
  5. ACCUTANE [Suspect]
     Route: 048
     Dates: start: 19990802, end: 19990819
  6. BENZAMYCIN [Concomitant]
     Route: 065
  7. MINOCYCLINE [Concomitant]
  8. SEPTRA [Concomitant]
     Indication: ACNE
     Route: 065
  9. CLEOCIN T [Concomitant]
     Route: 065
  10. DIFFERIN GEL [Concomitant]
     Route: 065
  11. CETAPHIL CREAM [Concomitant]
     Indication: DRY SKIN
     Route: 065
  12. VANCERIL [Concomitant]

REACTIONS (9)
  - Colitis ulcerative [Unknown]
  - Depression [Unknown]
  - Gastrointestinal injury [Unknown]
  - Joint injury [Unknown]
  - Diverticulitis [Unknown]
  - Diarrhoea haemorrhagic [Recovering/Resolving]
  - Irritable bowel syndrome [Unknown]
  - Back pain [Unknown]
  - Neck injury [Unknown]
